APPROVED DRUG PRODUCT: METHYLPHENIDATE HYDROCHLORIDE
Active Ingredient: METHYLPHENIDATE HYDROCHLORIDE
Strength: 20MG
Dosage Form/Route: TABLET;ORAL
Application: A211779 | Product #003 | TE Code: AB
Applicant: ALKEM LABORATORIES LTD
Approved: Oct 4, 2019 | RLD: No | RS: No | Type: RX